FAERS Safety Report 14923112 (Version 2)
Quarter: 2018Q3

REPORT INFORMATION
  Report Type: Report from Study
  Country: DE (occurrence: DE)
  Receive Date: 20180522
  Receipt Date: 20180830
  Transmission Date: 20181010
  Serious: Yes (Hospitalization)
  Sender: FDA-Public Use
  Company Number: PHHY2015DE101430

PATIENT
  Sex: Female

DRUGS (8)
  1. DERMATOP [Concomitant]
     Active Substance: PREDNICARBATE
     Indication: PRURITUS
     Dosage: 50 G (IF NEEDED)
     Route: 065
     Dates: start: 20150203
  2. AMOXICOMP [Concomitant]
     Indication: PROPHYLAXIS
     Dosage: 125 MG, TID (1?1?1)
     Route: 048
     Dates: start: 20150511, end: 20150603
  3. TASIGNA [Suspect]
     Active Substance: NILOTINIB
     Indication: CHRONIC MYELOID LEUKAEMIA
     Dosage: 600 MG, QD
     Route: 065
     Dates: start: 20150120
  4. METAMIZOLE [Concomitant]
     Active Substance: METAMIZOLE
     Indication: ABDOMINAL PAIN UPPER
     Dosage: 500 MG (IF NEEDED)
     Route: 065
     Dates: start: 20150203
  5. MCP [Concomitant]
     Active Substance: METOCLOPRAMIDE HYDROCHLORIDE
     Indication: ABDOMINAL PAIN UPPER
     Dosage: 10 MG (IF NEEDED)
     Route: 065
     Dates: start: 20150203
  6. OXYGESIC [Concomitant]
     Active Substance: OXYCODONE
     Indication: PAIN
     Dosage: 5 MG, BID
     Route: 048
     Dates: start: 20150511
  7. PREDNISONE. [Concomitant]
     Active Substance: PREDNISONE
     Indication: PRODUCT USED FOR UNKNOWN INDICATION
     Dosage: UNK
     Route: 065
     Dates: start: 20161018, end: 20161106
  8. NOVALGIN (METAMIZOLE SODIUM) [Concomitant]
     Active Substance: METAMIZOLE SODIUM
     Indication: PAIN
     Dosage: 30 DF (30 DROPS, 1?1?1?1)
     Route: 048
     Dates: start: 20150511

REACTIONS (2)
  - Ileus [Not Recovered/Not Resolved]
  - Small intestinal stenosis [Recovered/Resolved]

NARRATIVE: CASE EVENT DATE: 20150422
